FAERS Safety Report 18119429 (Version 5)
Quarter: 2021Q1

REPORT INFORMATION
  Report Type: Report from Study
  Country: US (occurrence: US)
  Receive Date: 20200806
  Receipt Date: 20210122
  Transmission Date: 20210419
  Serious: Yes (Other)
  Sender: FDA-Public Use
  Company Number: US-PFIZER INC-2020222801

PATIENT
  Age: 64 Year
  Sex: Female

DRUGS (1)
  1. IBRANCE [Suspect]
     Active Substance: PALBOCICLIB
     Indication: BREAST CANCER FEMALE
     Dosage: 125 MG, CYCLIC (ONCE A DAY, 21 DAYS ON, 7 DAYS OFF)
     Route: 048
     Dates: start: 20200512

REACTIONS (17)
  - Haemorrhage [Unknown]
  - Alopecia [Unknown]
  - Constipation [Unknown]
  - Nausea [Not Recovered/Not Resolved]
  - Dyspnoea exertional [Unknown]
  - White blood cell count decreased [Unknown]
  - Pelvic pain [Unknown]
  - Oedema peripheral [Unknown]
  - Neck pain [Unknown]
  - Fatigue [Unknown]
  - Condition aggravated [Unknown]
  - Pain [Recovering/Resolving]
  - Contusion [Unknown]
  - Back pain [Recovering/Resolving]
  - Arthralgia [Recovering/Resolving]
  - Muscle tightness [Unknown]
  - Bone pain [Unknown]

NARRATIVE: CASE EVENT DATE: 2020
